FAERS Safety Report 8111930-1 (Version None)
Quarter: 2012Q1

REPORT INFORMATION
  Report Type: 
  Country: None (occurrence: None)
  Receive Date: 20120203
  Receipt Date: 20110527
  Transmission Date: 20120608
  Serious: Yes (Hospitalization, Other)
  Sender: FDA-Public Use
  Company Number: US-GLAXOSMITHKLINE-A0929520A

PATIENT
  Age: 84 Year
  Sex: Male
  Weight: 70.5 kg

DRUGS (10)
  1. ARIXTRA [Suspect]
     Indication: AORTIC VALVE REPLACEMENT
     Dosage: 2.5MG PER DAY
     Route: 058
     Dates: start: 20080501
  2. NITROGLYCERIN [Concomitant]
  3. ASPIRIN [Concomitant]
  4. PRAVASTATIN [Concomitant]
  5. FUROSEMIDE [Concomitant]
  6. ALLOPURINOL [Concomitant]
  7. LISINOPRIL [Concomitant]
  8. LANTUS [Concomitant]
  9. CARVEDILOL [Concomitant]
  10. PRILOSEC [Concomitant]

REACTIONS (1)
  - HAEMORRHAGE [None]
